FAERS Safety Report 11241868 (Version 2)
Quarter: 2016Q1

REPORT INFORMATION
  Report Type: Spontaneous
  Country: US (occurrence: US)
  Receive Date: 20150706
  Receipt Date: 20160121
  Transmission Date: 20160525
  Serious: Yes (Hospitalization, Other)
  Sender: FDA-Public Use
  Company Number: US-DSJP-DSU-2015-120645

PATIENT

DRUGS (2)
  1. BENICAR [Suspect]
     Active Substance: OLMESARTAN MEDOXOMIL
     Indication: HYPERTENSION
     Dosage: 40 MG, QD
     Route: 048
     Dates: start: 2007
  2. BENICAR [Suspect]
     Active Substance: OLMESARTAN MEDOXOMIL
     Dosage: UNK

REACTIONS (19)
  - Cholecystitis [Recovered/Resolved]
  - Renal atrophy [Unknown]
  - Gastrooesophageal reflux disease [Unknown]
  - Colitis [Unknown]
  - Hepatic steatosis [Unknown]
  - Anaemia [Unknown]
  - Colitis ulcerative [Unknown]
  - Hydronephrosis [Unknown]
  - Malabsorption [Unknown]
  - Ureteral polyp [Unknown]
  - Rectal haemorrhage [Recovered/Resolved]
  - Stoma obstruction [Unknown]
  - Diarrhoea haemorrhagic [Recovered/Resolved]
  - Small intestinal obstruction [Unknown]
  - Renal cyst [Unknown]
  - Acute kidney injury [Unknown]
  - Rectal abscess [Unknown]
  - Pancreatitis [Unknown]
  - Hernia [Unknown]

NARRATIVE: CASE EVENT DATE: 20080501
